FAERS Safety Report 5808421-7 (Version None)
Quarter: 2008Q3

REPORT INFORMATION
  Report Type: 
  Country: None (occurrence: None)
  Receive Date: 20080714
  Receipt Date: 20080708
  Transmission Date: 20090109
  Serious: Yes (Hospitalization)
  Sender: FDA-Public Use
  Company Number: US-BAYER-200818045NA

PATIENT
  Age: 62 Year
  Sex: Female
  Weight: 77 kg

DRUGS (4)
  1. SORAFENIB OR PLACEBO [Suspect]
     Indication: BREAST CANCER METASTATIC
     Dosage: TOTAL DAILY DOSE: 800 MG  UNIT DOSE: 200 MG
     Route: 048
     Dates: start: 20080128, end: 20080303
  2. LETROZOLE [Suspect]
     Indication: BREAST CANCER METASTATIC
     Dosage: TOTAL DAILY DOSE: 2.5 MG
     Route: 048
  3. MS CONTIN [Concomitant]
  4. REGLAN [Concomitant]

REACTIONS (7)
  - ASTHENIA [None]
  - DISSEMINATED INTRAVASCULAR COAGULATION [None]
  - DYSPHAGIA [None]
  - MICROANGIOPATHIC HAEMOLYTIC ANAEMIA [None]
  - MUCOSAL INFLAMMATION [None]
  - RENAL FAILURE [None]
  - THROMBOCYTOPENIA [None]
